FAERS Safety Report 4575286-3 (Version None)
Quarter: 2005Q1

REPORT INFORMATION
  Report Type: 
  Country: None (occurrence: None)
  Receive Date: 20050127
  Receipt Date: 20050127
  Transmission Date: 20050727
  Serious: Yes (Life-Threatening, Hospitalization, Disabling)
  Sender: FDA-Public Use
  Company Number: None

PATIENT
  Age: 47 Year
  Sex: Female
  Weight: 55.3388 kg

DRUGS (4)
  1. VIOXX [Suspect]
     Indication: SYSTEMIC LUPUS ERYTHEMATOSUS
     Dosage: 1 TO 2 A DAY
     Dates: start: 20001201, end: 20021201
  2. CELEBREX [Suspect]
  3. BEXTRA [Suspect]
  4. RELAFEN [Suspect]

REACTIONS (4)
  - BLOOD CHOLESTEROL INCREASED [None]
  - GASTROINTESTINAL DISORDER [None]
  - HYPERTENSION [None]
  - MYOCARDIAL INFARCTION [None]
